FAERS Safety Report 5521464-6 (Version None)
Quarter: 2007Q4

REPORT INFORMATION
  Report Type: 
  Country: None (occurrence: None)
  Receive Date: 20071119
  Receipt Date: 20071107
  Transmission Date: 20080405
  Serious: Yes (Other)
  Sender: FDA-Public Use
  Company Number: US-PFIZER INC-2007077111

PATIENT
  Sex: Male
  Weight: 105.5 kg

DRUGS (8)
  1. CHANTIX [Suspect]
     Indication: SMOKING CESSATION THERAPY
     Route: 048
  2. SYNTHROID [Concomitant]
  3. TRICOR [Concomitant]
  4. DEPAKOTE [Concomitant]
  5. ROBAXIN [Concomitant]
  6. LORTAB [Concomitant]
  7. NIACIN [Concomitant]
  8. ACETYLSALICYLIC ACID SRT [Concomitant]

REACTIONS (4)
  - CHEST PAIN [None]
  - DYSPNOEA [None]
  - HYPOAESTHESIA [None]
  - PAIN [None]
